FAERS Safety Report 11133296 (Version 2)
Quarter: 2015Q2

REPORT INFORMATION
  Report Type: Spontaneous
  Country: US (occurrence: US)
  Receive Date: 20150522
  Receipt Date: 20150529
  Transmission Date: 20150821
  Serious: No
  Sender: FDA-Public Use
  Company Number: US-PFIZER INC-2015169072

PATIENT
  Sex: Female

DRUGS (1)
  1. LATANOPROST. [Suspect]
     Active Substance: LATANOPROST
     Dosage: 1 GTT, DAILY (1 DROP INTO LEFT EYE BED TIME)
     Route: 047

REACTIONS (4)
  - Foreign body sensation in eyes [Unknown]
  - Dark circles under eyes [Unknown]
  - Vision blurred [Unknown]
  - Erythema [Unknown]
